FAERS Safety Report 8535084-2 (Version None)
Quarter: 2012Q3

REPORT INFORMATION
  Report Type: 
  Country: None (occurrence: None)
  Receive Date: 20120724
  Receipt Date: 20120713
  Transmission Date: 20120928
  Serious: Yes (Other)
  Sender: FDA-Public Use
  Company Number: JP-PFIZER INC-2012168886

PATIENT
  Age: 70 Year
  Sex: Male

DRUGS (3)
  1. FLUOROMETHOLONE [Concomitant]
     Indication: PROPHYLAXIS
     Dosage: UNK
     Route: 047
     Dates: start: 20120501, end: 20120629
  2. DIQUAFOSOL TETRASODIUM [Concomitant]
     Indication: DRY EYE
     Dosage: UNK
     Route: 047
     Dates: start: 20120501, end: 20120629
  3. XALATAN [Suspect]
     Indication: GLAUCOMA
     Dosage: UNK
     Route: 047
     Dates: start: 20120501

REACTIONS (2)
  - KERATITIS HERPETIC [None]
  - INTRAOCULAR PRESSURE INCREASED [None]
